FAERS Safety Report 8092236-6 (Version None)
Quarter: 2012Q1

REPORT INFORMATION
  Report Type: 
  Country: None (occurrence: None)
  Receive Date: 20120129
  Receipt Date: 20111103
  Transmission Date: 20120608
  Serious: No
  Sender: FDA-Public Use
  Company Number: US-ABBOTT-11P-163-0871680-00

PATIENT
  Sex: Female
  Weight: 86.26 kg

DRUGS (13)
  1. HUMIRA [Suspect]
     Indication: RHEUMATOID ARTHRITIS
     Dates: end: 20110901
  2. HUMIRA [Suspect]
     Dates: start: 20110901
  3. METHOTREXATE [Concomitant]
     Indication: RHEUMATOID ARTHRITIS
  4. MULTI-VITAMIN [Concomitant]
     Indication: VITAMIN SUPPLEMENTATION
  5. FOLIC ACID [Concomitant]
     Indication: VITAMIN SUPPLEMENTATION
  6. CLONIDINE [Concomitant]
     Indication: HYPERTENSION
  7. ASPIRIN [Concomitant]
     Indication: PROPHYLAXIS
  8. HYDROCHLOROTHIAZIDE [Concomitant]
     Indication: HYPERTENSION
  9. VITAMIN K TAB [Concomitant]
     Indication: VITAMIN SUPPLEMENTATION
  10. SULFASALAZINE [Concomitant]
     Indication: RHEUMATOID ARTHRITIS
  11. HYDROCHLOROTHIAZIDE [Concomitant]
     Indication: FLUID RETENTION
  12. CALCIUM [Concomitant]
     Indication: MINERAL SUPPLEMENTATION
  13. LEVOTHYROXINE SODIUM [Concomitant]
     Indication: HYPOTHYROIDISM

REACTIONS (1)
  - SINUSITIS [None]
